FAERS Safety Report 14340302 (Version 3)
Quarter: 2018Q1

REPORT INFORMATION
  Report Type: Report from Study
  Country: US (occurrence: US)
  Receive Date: 20180101
  Receipt Date: 20180330
  Transmission Date: 20180509
  Serious: Yes (Hospitalization)
  Sender: FDA-Public Use
  Company Number: US-ROCHE-1941912

PATIENT
  Age: 75 Year
  Sex: Female

DRUGS (19)
  1. ESBRIET [Suspect]
     Active Substance: PIRFENIDONE
     Route: 048
     Dates: start: 20170609
  2. LORATADINE. [Concomitant]
     Active Substance: LORATADINE
     Route: 048
     Dates: start: 20170410, end: 20170807
  3. SINGULAIR [Concomitant]
     Active Substance: MONTELUKAST SODIUM
     Route: 048
     Dates: start: 20170410, end: 20170807
  4. SYMBICORT [Concomitant]
     Active Substance: BUDESONIDE\FORMOTEROL FUMARATE DIHYDRATE
     Route: 065
     Dates: start: 20170309, end: 20170706
  5. LEVOFLOXACIN. [Concomitant]
     Active Substance: LEVOFLOXACIN
  6. COMBIVENT [Concomitant]
     Active Substance: ALBUTEROL SULFATE\IPRATROPIUM BROMIDE
     Route: 065
     Dates: start: 20170410, end: 20170807
  7. CINNARIZINE [Concomitant]
     Active Substance: CINNARIZINE
  8. OMEPRAZOLE. [Concomitant]
     Active Substance: OMEPRAZOLE
     Route: 048
     Dates: start: 20170829
  9. PREDNISONE. [Concomitant]
     Active Substance: PREDNISONE
     Route: 065
     Dates: start: 20170410, end: 20170608
  10. ACYCLOVIR. [Concomitant]
     Active Substance: ACYCLOVIR
  11. MONTELUKAST SODIUM. [Concomitant]
     Active Substance: MONTELUKAST SODIUM
  12. METFORMIN HYDROCHLORIDE. [Concomitant]
     Active Substance: METFORMIN HYDROCHLORIDE
  13. ESBRIET [Suspect]
     Active Substance: PIRFENIDONE
     Route: 048
     Dates: start: 20170606
  14. ESBRIET [Suspect]
     Active Substance: PIRFENIDONE
     Indication: IDIOPATHIC PULMONARY FIBROSIS
     Route: 048
  15. IPRATROPIUM BROMIDE. [Concomitant]
     Active Substance: IPRATROPIUM BROMIDE
     Route: 065
     Dates: start: 20170410, end: 20170807
  16. SPIRIVA [Concomitant]
     Active Substance: TIOTROPIUM BROMIDE MONOHYDRATE
     Route: 065
     Dates: start: 20170410, end: 20170807
  17. FLONASE [Concomitant]
     Active Substance: FLUTICASONE PROPIONATE
     Route: 065
     Dates: start: 20170410, end: 20170807
  18. FLONASE [Concomitant]
     Active Substance: FLUTICASONE PROPIONATE
     Route: 065
     Dates: start: 20170410, end: 20170807
  19. ALBUTEROL SULFATE. [Concomitant]
     Active Substance: ALBUTEROL SULFATE
     Dosage: 2.5MG/3ML
     Route: 065
     Dates: start: 20170410, end: 20170807

REACTIONS (10)
  - Pneumonia [Unknown]
  - Dyspnoea [Unknown]
  - Nasal congestion [Unknown]
  - Nail disorder [Unknown]
  - Lung disorder [Unknown]
  - Pulmonary oedema [Unknown]
  - Influenza [Unknown]
  - Rhinorrhoea [Unknown]
  - Cough [Unknown]
  - Nausea [Unknown]

NARRATIVE: CASE EVENT DATE: 20171202
